FAERS Safety Report 14923917 (Version 1)
Quarter: 2018Q2

REPORT INFORMATION
  Report Type: Spontaneous
  Country: US (occurrence: US)
  Receive Date: 20180503
  Receipt Date: 20180503
  Transmission Date: 20180711
  Serious: Yes (Life-Threatening, Hospitalization, Other)
  Sender: FDA-Public Use
  Company Number: None

PATIENT
  Age: 27 Year
  Sex: Female
  Weight: 68.04 kg

DRUGS (1)
  1. SKYLA [Suspect]
     Active Substance: LEVONORGESTREL
     Dates: start: 20160104, end: 20171109

REACTIONS (3)
  - Pregnancy with contraceptive device [None]
  - Ruptured ectopic pregnancy [None]
  - Internal haemorrhage [None]

NARRATIVE: CASE EVENT DATE: 20171109
